FAERS Safety Report 5949402-2 (Version None)
Quarter: 2008Q4

REPORT INFORMATION
  Report Type: 
  Country: None (occurrence: None)
  Receive Date: 20081112
  Receipt Date: 20081030
  Transmission Date: 20090506
  Serious: Yes (Hospitalization, Disabling, Other)
  Sender: FDA-Public Use
  Company Number: PHRM2006FR03336

PATIENT
  Sex: Male

DRUGS (24)
  1. ZOMETA [Suspect]
     Indication: METASTASES TO BONE
     Dosage: 4 MG, QMO
     Route: 042
     Dates: start: 20020901, end: 20060301
  2. MORPHINE [Concomitant]
     Indication: PAIN IN JAW
     Dosage: 20 MG (IF NEEDED)
  3. SKENAN [Concomitant]
     Indication: PAIN IN JAW
     Dosage: 60 MG, BID
  4. TRILEPTAL [Concomitant]
     Indication: PAIN IN JAW
     Dosage: 150 MG, BID
  5. DOLIPRANE [Concomitant]
     Dosage: 1 G
     Dates: start: 20060410, end: 20080301
  6. DURAGESIC-100 [Concomitant]
     Dosage: 50
  7. KLIPAL [Concomitant]
     Dosage: UNK
  8. RIVOTRIL [Concomitant]
  9. DI-ANTALVIC [Concomitant]
  10. DECAPEPTYL                              /SCH/ [Concomitant]
  11. LYTOS [Concomitant]
  12. SEROPRAM [Concomitant]
  13. FORLAX [Concomitant]
  14. BETADINE [Concomitant]
  15. SODIUM BICARBONATE [Concomitant]
  16. ELUDRIL [Concomitant]
  17. FLAGYL [Concomitant]
     Dosage: 500 MG, TID
  18. AUGMENTIN [Concomitant]
     Dosage: 1 G, TID
  19. ULTRA-LEVURE [Concomitant]
  20. FEBRECTOL TABLET [Concomitant]
     Dosage: UNK
     Dates: start: 20060410, end: 20080301
  21. CASODEX [Concomitant]
  22. LEUPROLIDE ACETATE [Concomitant]
  23. ANDROCUR [Concomitant]
  24. RADIOTHERAPY [Concomitant]
     Dosage: 30 GYS ON LEFT HIP
     Dates: start: 20030113, end: 20030130

REACTIONS (23)
  - ABDOMINAL SEPSIS [None]
  - AGEUSIA [None]
  - BONE DEBRIDEMENT [None]
  - BONE FISTULA [None]
  - DEPRESSED MOOD [None]
  - FATIGUE [None]
  - FISTULA [None]
  - GASTROINTESTINAL TUBE INSERTION [None]
  - GENERAL PHYSICAL HEALTH DETERIORATION [None]
  - HYPOACUSIS [None]
  - JAW DISORDER [None]
  - MALNUTRITION [None]
  - NEURALGIA [None]
  - ORAL DISORDER [None]
  - ORAL SURGERY [None]
  - OSTEOLYSIS [None]
  - OSTEONECROSIS [None]
  - PAIN IN JAW [None]
  - PRIMARY SEQUESTRUM [None]
  - PURULENT DISCHARGE [None]
  - SPEECH DISORDER [None]
  - SWELLING [None]
  - TOOTH EXTRACTION [None]
